FAERS Safety Report 4283991-1 (Version None)
Quarter: 2004Q1

REPORT INFORMATION
  Report Type: 
  Country: None (occurrence: None)
  Receive Date: 20040130
  Receipt Date: 20040112
  Transmission Date: 20041129
  Serious: Yes (Other)
  Sender: FDA-Public Use
  Company Number: US_040199905

PATIENT
  Age: 62 Year
  Sex: Male
  Weight: 82 kg

DRUGS (9)
  1. LENTE ILETIN II (PORK) [Suspect]
     Indication: DIABETES MELLITUS
     Dosage: 22  U/1 IN THE MORNING
     Dates: start: 20000801
  2. REGULAR INSULIN [Suspect]
     Indication: DIABETES MELLITUS
     Dosage: 22  U/1 IN THE MORNING
     Dates: start: 20000801
  3. ILETIN [Suspect]
     Indication: DIABETES MELLITUS
     Dates: end: 20000801
  4. ILETIN [Suspect]
     Indication: DIABETES MELLITUS
     Dates: end: 20000801
  5. HUMULIN R [Suspect]
     Indication: DIABETES MELLITUS
     Dosage: 22 U/1 IN THE MORNING
     Dates: start: 19900101, end: 20000801
  6. HUMULIN U [Suspect]
     Indication: DIABETES MELLITUS
     Dosage: 10 U/1 IN THE MORNING
     Dates: start: 19900101, end: 20000801
  7. HUMULIN L [Suspect]
     Indication: DIABETES MELLITUS
     Dosage: 22 U/1 IN THE MORNING
  8. NPH ILETIN II (PORK) [Suspect]
     Indication: DIABETES MELLITUS
  9. PLENDIL [Concomitant]

REACTIONS (5)
  - BLOOD GLUCOSE DECREASED [None]
  - CEREBROVASCULAR ACCIDENT [None]
  - FALL [None]
  - INFLUENZA [None]
  - PERIORBITAL HAEMATOMA [None]
